FAERS Safety Report 8185352-1 (Version None)
Quarter: 2012Q1

REPORT INFORMATION
  Report Type: 
  Country: None (occurrence: None)
  Receive Date: 20120305
  Receipt Date: 20120228
  Transmission Date: 20120608
  Serious: Yes (Disabling, Other)
  Sender: FDA-Public Use
  Company Number: PHHY2012PT017507

PATIENT
  Sex: Female

DRUGS (2)
  1. RALOXIFENE HCL [Concomitant]
     Indication: OSTEOPOROSIS POSTMENOPAUSAL
     Dosage: 60 MG, UNK
     Route: 048
     Dates: start: 20120215
  2. ZOLEDRONOC ACID [Suspect]
     Indication: OSTEOPOROSIS POSTMENOPAUSAL
     Dosage: 5 MG, ANNUALLY
     Route: 042
     Dates: start: 20111209

REACTIONS (10)
  - OEDEMA PERIPHERAL [None]
  - GENERALISED OEDEMA [None]
  - MALAISE [None]
  - RASH [None]
  - PYREXIA [None]
  - MOBILITY DECREASED [None]
  - JOINT SWELLING [None]
  - ARTHRALGIA [None]
  - MYALGIA [None]
  - ERYTHEMA [None]
